FAERS Safety Report 5853974-6 (Version None)
Quarter: 2008Q3

REPORT INFORMATION
  Report Type: 
  Country: None (occurrence: None)
  Receive Date: 20080822
  Receipt Date: 20080818
  Transmission Date: 20090109
  Serious: Yes (Other)
  Sender: FDA-Public Use
  Company Number: JP-ASTRAZENECA-2008AC02201

PATIENT
  Age: 75 Year
  Sex: Female
  Weight: 55.2 kg

DRUGS (17)
  1. PROPOFOL [Suspect]
     Indication: INDUCTION OF ANAESTHESIA
     Route: 042
  2. PROPOFOL [Suspect]
     Indication: MAINTENANCE OF ANAESTHESIA
     Route: 042
  3. PROPOFOL [Suspect]
     Dosage: 4-6 MG/KG/HR
     Route: 042
  4. PROPOFOL [Suspect]
     Dosage: 4-6 MG/KG/HR
     Route: 042
  5. FENTANYL-25 [Suspect]
     Indication: INDUCTION OF ANAESTHESIA
     Dosage: 100 UG
  6. FENTANYL-25 [Suspect]
     Indication: MAINTENANCE OF ANAESTHESIA
     Dosage: 100 UG
  7. FENTANYL-25 [Suspect]
     Dosage: TOTAL, 200 UG
  8. FENTANYL-25 [Suspect]
     Dosage: TOTAL, 200 UG
  9. KETAMINE HCL [Suspect]
     Indication: INDUCTION OF ANAESTHESIA
     Dosage: 60 MG
  10. KETAMINE HCL [Suspect]
     Indication: MAINTENANCE OF ANAESTHESIA
     Dosage: 60 MG
  11. KETAMINE HCL [Suspect]
     Dosage: 0.3 - 1 MG/KG/HR
  12. KETAMINE HCL [Suspect]
     Dosage: 0.3 - 1 MG/KG/HR
  13. ANTIHYPERTENSIVE AGENTS [Concomitant]
     Indication: HYPERTENSION
  14. INSULIN [Concomitant]
     Indication: DIABETES MELLITUS
     Route: 058
  15. SUXAMETHONIUM [Concomitant]
     Indication: HYPOTONIA
     Dosage: 40 MG
     Route: 042
  16. VECURONIUM BROMIDE [Concomitant]
     Indication: HYPOTONIA
     Dosage: INTERMITTENT VECURONIUM, TOTAL 5 MG
  17. ATROPINE [Concomitant]
     Dosage: 0.5 MG
     Route: 042

REACTIONS (2)
  - BISPECTRAL INDEX DECREASED [None]
  - BRADYCARDIA [None]
